FAERS Safety Report 8117770 (Version 3)
Quarter: 2013Q1

REPORT INFORMATION
  Report Type: Spontaneous
  Country: US (occurrence: US)
  Receive Date: 20110901
  Receipt Date: 20130213
  Transmission Date: 20140127
  Serious: Yes (Life-Threatening)
  Sender: FDA-Public Use
  Company Number: US-BAYER-2011-079759

PATIENT
  Age: 29 Year
  Sex: Female
  Weight: 61.22 kg

DRUGS (4)
  1. YASMIN [Suspect]
     Indication: CONTRACEPTION
     Dosage: UNK
     Dates: start: 2005, end: 2005
  2. IMITREX [Concomitant]
  3. MOTRIN [Concomitant]
  4. MULTIVITAMIN [Concomitant]

REACTIONS (6)
  - Deep vein thrombosis [Recovered/Resolved]
  - Deep vein thrombosis [None]
  - Anxiety [None]
  - Anhedonia [None]
  - Injury [Recovered/Resolved]
  - Pain [Recovered/Resolved]
